FAERS Safety Report 10397323 (Version 2)
Quarter: 2014Q3

REPORT INFORMATION
  Report Type: Spontaneous
  Country: US (occurrence: US)
  Receive Date: 20140820
  Receipt Date: 20140910
  Transmission Date: 20150326
  Serious: No
  Sender: FDA-Public Use
  Company Number: US-PFIZER INC-2014231523

PATIENT
  Age: 54 Year
  Sex: Male
  Weight: 68.03 kg

DRUGS (5)
  1. CHANTIX [Suspect]
     Active Substance: VARENICLINE TARTRATE
     Indication: SMOKING CESSATION THERAPY
     Dosage: UNK
     Dates: start: 20070306
  2. CHANTIX [Suspect]
     Active Substance: VARENICLINE TARTRATE
     Dosage: UNK
     Dates: start: 20070924
  3. TRIHEXYPHENIDY [Concomitant]
     Dosage: 2 MG, 2X/DAY
  4. RISPERIDONE. [Concomitant]
     Active Substance: RISPERIDONE
     Dosage: 7 MG, 2X/DAY
  5. GABAPENTIN. [Concomitant]
     Active Substance: GABAPENTIN
     Dosage: 100 MG, 4X/DAY

REACTIONS (4)
  - Personality change [Unknown]
  - Anger [Unknown]
  - Cough [Unknown]
  - Mood altered [Unknown]
